FAERS Safety Report 9179309 (Version 1)
Quarter: 2013Q1

REPORT INFORMATION
  Report Type: Spontaneous
  Country: US (occurrence: US)
  Receive Date: 20130321
  Receipt Date: 20130321
  Transmission Date: 20140127
  Serious: Yes (Hospitalization, Other)
  Sender: FDA-Public Use
  Company Number: US-BAYER-2013-032076

PATIENT
  Age: 32 Year
  Sex: Female
  Weight: 111.11 kg

DRUGS (1)
  1. YASMIN [Suspect]

REACTIONS (2)
  - Deep vein thrombosis [None]
  - Cholelithiasis [None]
